FAERS Safety Report 5150141-9 (Version None)
Quarter: 2006Q4

REPORT INFORMATION
  Report Type: 
  Country: None (occurrence: None)
  Receive Date: 20061108
  Receipt Date: 20061020
  Transmission Date: 20070319
  Serious: Yes (Other)
  Sender: FDA-Public Use
  Company Number: US-2006-031968

PATIENT
  Age: 39 Year
  Sex: Female

DRUGS (1)
  1. BETASERON [Suspect]
     Indication: RELAPSING-REMITTING MULTIPLE SCLEROSIS
     Dosage: UNK, UNK, SUBCUTANEOUS
     Route: 058
     Dates: start: 20050315

REACTIONS (7)
  - ANOREXIA [None]
  - CHILLS [None]
  - INFLUENZA LIKE ILLNESS [None]
  - MALAISE [None]
  - PYREXIA [None]
  - STAPHYLOCOCCAL INFECTION [None]
  - WEIGHT DECREASED [None]
